FAERS Safety Report 8488460-0 (Version None)
Quarter: 2012Q3

REPORT INFORMATION
  Report Type: 
  Country: None (occurrence: None)
  Receive Date: 20120705
  Receipt Date: 20120626
  Transmission Date: 20120928
  Serious: Yes (Hospitalization)
  Sender: FDA-Public Use
  Company Number: DE-JNJFOC-20120613970

PATIENT
  Sex: Female
  Weight: 44.7 kg

DRUGS (4)
  1. MESALAMINE [Concomitant]
     Route: 048
  2. AZATHIOPRINE [Concomitant]
  3. HUMIRA [Concomitant]
     Dates: start: 20110405, end: 20110715
  4. REMICADE [Suspect]
     Indication: CROHN'S DISEASE
     Route: 042
     Dates: start: 20090317, end: 20100420

REACTIONS (1)
  - CROHN'S DISEASE [None]
